FAERS Safety Report 11107241 (Version 2)
Quarter: 2015Q2

REPORT INFORMATION
  Report Type: Spontaneous
  Country: GB (occurrence: GB)
  Receive Date: 20150512
  Receipt Date: 20150522
  Transmission Date: 20150821
  Serious: Yes (Life-Threatening, Hospitalization, Other)
  Sender: FDA-Public Use
  Company Number: PHFR2015GB003677

PATIENT
  Sex: Female

DRUGS (2)
  1. CLOZARIL [Suspect]
     Active Substance: CLOZAPINE
     Indication: SCHIZOPHRENIA
     Dosage: UNK
     Route: 048
     Dates: start: 20010409
  2. CLOZARIL [Suspect]
     Active Substance: CLOZAPINE
     Dosage: 400 MG, DAILY (150 MG MANE QD AND 250 MG NOCTE)
     Route: 048
     Dates: end: 20150423

REACTIONS (4)
  - Eating disorder [Unknown]
  - Lung neoplasm malignant [Unknown]
  - Terminal state [Unknown]
  - Dyspnoea [Unknown]
